FAERS Safety Report 10523238 (Version 1)
Quarter: 2014Q4

REPORT INFORMATION
  Report Type: Report from Study
  Country: JP (occurrence: JP)
  Receive Date: 20141016
  Receipt Date: 20141016
  Transmission Date: 20150528
  Serious: Yes (Hospitalization, Other)
  Sender: FDA-Public Use
  Company Number: JP-GLAXOSMITHKLINE-JP2014JPN000443

PATIENT
  Age: 9 Year
  Sex: Female
  Weight: 21 kg

DRUGS (20)
  1. NELARABINE [Suspect]
     Active Substance: NELARABINE
     Dosage: 650 MG/M2, QD
     Route: 041
     Dates: start: 20121119, end: 20121123
  2. CYLOCIDE [Suspect]
     Active Substance: CYTARABINE
     Indication: NEOPLASM MALIGNANT
     Dosage: UNK
     Route: 042
     Dates: start: 20110901, end: 20111018
  3. VEPSID [Suspect]
     Active Substance: ETOPOSIDE
     Route: 065
  4. HYDROCORTISONE. [Concomitant]
     Active Substance: HYDROCORTISONE
     Indication: NEOPLASM MALIGNANT
     Dosage: UNK
     Dates: start: 20110901, end: 20111018
  5. BAKTAR [Concomitant]
     Active Substance: SULFAMETHOXAZOLE\TRIMETHOPRIM
     Indication: INFECTION PROPHYLAXIS
     Dosage: UNK
     Dates: start: 20110906, end: 20140219
  6. NELARABINE [Suspect]
     Active Substance: NELARABINE
     Indication: PRECURSOR T-LYMPHOBLASTIC LYMPHOMA/LEUKAEMIA
     Dosage: 565 UNK, QD
     Route: 041
     Dates: start: 20111129, end: 20111203
  7. LEUKERIN [Concomitant]
     Active Substance: MERCAPTOPURINE
     Indication: NEOPLASM MALIGNANT
     Dosage: UNK
     Dates: start: 20111018, end: 20111114
  8. KYTRIL [Concomitant]
     Active Substance: GRANISETRON HYDROCHLORIDE
     Indication: PROPHYLAXIS OF NAUSEA AND VOMITING
     Dosage: UNK
     Dates: start: 20111129, end: 20130315
  9. NELARABINE [Suspect]
     Active Substance: NELARABINE
     Dosage: 650 MG/M2, QD
     Route: 041
     Dates: start: 20130115, end: 20130119
  10. PREDONINE [Concomitant]
     Active Substance: PREDNISOLONE\PREDNISOLONE ACETATE\PREDNISOLONE SODIUM SUCCINATE
     Indication: NEOPLASM MALIGNANT
     Dosage: UNK
     Dates: start: 20110824, end: 20111005
  11. ENDOXAN [Concomitant]
     Active Substance: CYCLOPHOSPHAMIDE
     Dosage: UNK, QD
     Dates: start: 20111018, end: 20111018
  12. HALIZON [Concomitant]
     Indication: INFECTION PROPHYLAXIS
     Dosage: UNK
     Dates: start: 20110906, end: 20140219
  13. NELARABINE [Suspect]
     Active Substance: NELARABINE
     Dosage: 650 MG/M2, QD
     Route: 041
     Dates: start: 20120919, end: 20120923
  14. ENDOXAN [Concomitant]
     Active Substance: CYCLOPHOSPHAMIDE
     Indication: NEOPLASM MALIGNANT
     Dosage: UNK
     Dates: start: 20110902, end: 20110923
  15. METHOTREXATE [Concomitant]
     Active Substance: METHOTREXATE
     Indication: NEOPLASM MALIGNANT
     Dosage: UNK
     Dates: start: 20110901, end: 20111018
  16. NELARABINE [Suspect]
     Active Substance: NELARABINE
     Dosage: 650 MG/M2, QD
     Route: 041
     Dates: start: 20130311, end: 20130315
  17. NELARABINE [Suspect]
     Active Substance: NELARABINE
     Dosage: 650 MG/M2, QD
     Route: 041
     Dates: start: 20120313, end: 20120317
  18. LEUNASE [Suspect]
     Active Substance: ASPARAGINASE
     Indication: NEOPLASM MALIGNANT
     Dosage: UNK
     Route: 042
     Dates: start: 20110908, end: 20110926
  19. ONCOVIN [Concomitant]
     Active Substance: VINCRISTINE SULFATE
     Indication: NEOPLASM MALIGNANT
     Dosage: UNK, WE
     Dates: start: 20110901, end: 20120209
  20. DAUNOMYCIN [Concomitant]
     Active Substance: DAUNORUBICIN
     Indication: NEOPLASM MALIGNANT
     Dosage: UNK
     Dates: start: 20110903, end: 20110925

REACTIONS (2)
  - Pancreatitis acute [Recovered/Resolved]
  - Anaemia [Recovered/Resolved]

NARRATIVE: CASE EVENT DATE: 20111205
